FAERS Safety Report 24217684 (Version 1)
Quarter: 2024Q3

REPORT INFORMATION
  Report Type: Spontaneous
  Country: US (occurrence: US)
  Receive Date: 20240816
  Receipt Date: 20240816
  Transmission Date: 20241016
  Serious: Yes (Other)
  Sender: MUNDIPHARMA EDO
  Company Number: US-Mundipharma Research Limited-2160534

PATIENT
  Sex: Female

DRUGS (1)
  1. REZZAYO [Suspect]
     Active Substance: REZAFUNGIN
     Indication: Vulvovaginal candidiasis
     Route: 042

REACTIONS (4)
  - Dyspnoea [Recovering/Resolving]
  - Swelling [Recovering/Resolving]
  - Urticaria [Recovering/Resolving]
  - Muscle tightness [Recovering/Resolving]
